FAERS Safety Report 10512154 (Version 4)
Quarter: 2014Q4

REPORT INFORMATION
  Report Type: Report from Study
  Country: US (occurrence: US)
  Receive Date: 20141010
  Receipt Date: 20141119
  Transmission Date: 20150528
  Serious: Yes (Other)
  Sender: FDA-Public Use
  Company Number: US-ABBVIE-14P-163-1292910-00

PATIENT
  Age: 37 Year
  Sex: Female

DRUGS (9)
  1. LUPRON DEPOT [Suspect]
     Active Substance: LEUPROLIDE ACETATE
     Indication: ENDOMETRIOSIS
     Route: 050
     Dates: start: 2000
  2. LUPRON DEPOT [Suspect]
     Active Substance: LEUPROLIDE ACETATE
     Indication: UTERINE LEIOMYOMA
  3. LUPRON DEPOT [Suspect]
     Active Substance: LEUPROLIDE ACETATE
     Indication: UTERINE LEIOMYOMA
  4. MIRTAZAPINE. [Concomitant]
     Active Substance: MIRTAZAPINE
     Indication: DEPRESSION
  5. CHANTIX [Suspect]
     Active Substance: VARENICLINE TARTRATE
     Dosage: DAY 4-7
     Route: 065
  6. MELOXICAM. [Concomitant]
     Active Substance: MELOXICAM
     Indication: ARTHRITIS
  7. LUPRON DEPOT [Suspect]
     Active Substance: LEUPROLIDE ACETATE
     Indication: ENDOMETRIOSIS
     Route: 050
     Dates: start: 20141103
  8. CHANTIX [Suspect]
     Active Substance: VARENICLINE TARTRATE
     Route: 065
  9. CHANTIX [Suspect]
     Active Substance: VARENICLINE TARTRATE
     Indication: EX-TOBACCO USER
     Dosage: DAY 1-3
     Route: 065
     Dates: start: 20141006

REACTIONS (15)
  - Hot flush [Recovered/Resolved]
  - Uterine leiomyoma [Unknown]
  - Pelvic pain [Not Recovered/Not Resolved]
  - Menstruation delayed [Unknown]
  - Back pain [Not Recovered/Not Resolved]
  - Night sweats [Not Recovered/Not Resolved]
  - Affect lability [Unknown]
  - Wrist fracture [Unknown]
  - Endometrial disorder [Not Recovered/Not Resolved]
  - Endometriosis [Unknown]
  - Ovarian cyst [Unknown]
  - Adnexa uteri pain [Not Recovered/Not Resolved]
  - Crying [Unknown]
  - Nausea [Unknown]
  - Stress [Unknown]

NARRATIVE: CASE EVENT DATE: 2000
